FAERS Safety Report 10259977 (Version 1)
Quarter: 2014Q2

REPORT INFORMATION
  Report Type: Spontaneous
  Country: US (occurrence: US)
  Receive Date: 20140625
  Receipt Date: 20140625
  Transmission Date: 20141212
  Serious: Yes (Other)
  Sender: FDA-Public Use
  Company Number: US-BAYER-2014-090607

PATIENT
  Age: 45 Year
  Sex: Female
  Weight: 91 kg

DRUGS (1)
  1. ALKA-SELTZER HEARTBURN RELIEFCHEWS ASSORTED FRUIT [Suspect]
     Indication: DYSPEPSIA
     Dosage: 2 DF, PRN
     Route: 048
     Dates: start: 20140605, end: 20140609

REACTIONS (4)
  - Swollen tongue [Not Recovered/Not Resolved]
  - Dyspnoea [Recovered/Resolved]
  - Urticaria [Not Recovered/Not Resolved]
  - Inappropriate schedule of drug administration [None]
